FAERS Safety Report 18315060 (Version 1)
Quarter: 2020Q3

REPORT INFORMATION
  Report Type: Spontaneous
  Country: CA (occurrence: CA)
  Receive Date: 20200925
  Receipt Date: 20200925
  Transmission Date: 20201103
  Serious: Yes (Other)
  Sender: FDA-Public Use
  Company Number: CA-BAXTER-2020BAX019292

PATIENT
  Age: 69 Year
  Sex: Female
  Weight: 77 kg

DRUGS (17)
  1. BETAMETHASONE. [Concomitant]
     Active Substance: BETAMETHASONE
     Indication: ECZEMA
     Dosage: PRN
     Route: 065
  2. PREDNISONE. [Concomitant]
     Active Substance: PREDNISONE
     Indication: VASCULITIS
     Dosage: ONGOING
     Route: 065
     Dates: start: 202008
  3. PREDNISONE. [Concomitant]
     Active Substance: PREDNISONE
     Route: 065
  4. SEPTRA [Concomitant]
     Active Substance: SULFAMETHOXAZOLE\TRIMETHOPRIM
     Indication: PROPHYLAXIS
     Dosage: ONGOING
     Route: 065
  5. ALVESCO [Concomitant]
     Active Substance: CICLESONIDE
     Indication: ASTHMA
     Dosage: ONGOING
     Route: 055
  6. BETAMETHASONE. [Concomitant]
     Active Substance: BETAMETHASONE
     Dosage: ONGOING
     Route: 065
  7. METHOTREXATE SODIUM. [Suspect]
     Active Substance: METHOTREXATE SODIUM
     Indication: PRODUCT USED FOR UNKNOWN INDICATION
     Route: 058
     Dates: start: 20200131, end: 20200417
  8. PREDNISONE. [Concomitant]
     Active Substance: PREDNISONE
     Dosage: DOSE INCREASED
     Route: 065
     Dates: start: 20200501
  9. BENADRYL [Concomitant]
     Active Substance: DIPHENHYDRAMINE HYDROCHLORIDE
     Indication: HYPERSENSITIVITY
     Dosage: ONGOING
     Route: 065
  10. PROCYTOX (CYCLOPHOSPHAMIDE) 2000MG/VIAL [Suspect]
     Active Substance: CYCLOPHOSPHAMIDE
     Indication: PRODUCT USED FOR UNKNOWN INDICATION
     Dosage: MINIMUM OF SIX IV PULSES
     Route: 042
     Dates: start: 20191004, end: 20200117
  11. AERIUS [Concomitant]
     Indication: HYPERSENSITIVITY
     Dosage: ONGOING
     Route: 065
  12. VITAMIN D [Concomitant]
     Active Substance: VITAMIN D NOS
     Indication: BONE DENSITY ABNORMAL
     Dosage: DOSE: 2000 UNITS NOT REPORTED, ONGOING
     Route: 065
  13. VENTOLIN [Concomitant]
     Active Substance: ALBUTEROL SULFATE
     Indication: ASTHMA
     Dosage: ONGOING
     Route: 055
  14. TECTA [Concomitant]
     Active Substance: PANTOPRAZOLE MAGNESIUM
     Indication: PROPHYLAXIS
     Dosage: ONGOING
     Route: 065
  15. HYDROCORTISONE. [Concomitant]
     Active Substance: HYDROCORTISONE
     Indication: ROSACEA
     Dosage: ONGOING, ON FACE PRN
     Route: 065
  16. PREDNISONE. [Concomitant]
     Active Substance: PREDNISONE
     Dosage: DOSE INCREASED
     Route: 065
     Dates: start: 20200427
  17. LEUCOVORIN. [Concomitant]
     Active Substance: LEUCOVORIN
     Indication: PRODUCT USED FOR UNKNOWN INDICATION
     Route: 065
     Dates: start: 20200228, end: 2020

REACTIONS (48)
  - Mood swings [Unknown]
  - Pyrexia [Unknown]
  - Condition aggravated [Unknown]
  - Blindness [Unknown]
  - Asthma [Unknown]
  - Drug hypersensitivity [Unknown]
  - Rash [Unknown]
  - Jaundice [Unknown]
  - Alopecia [Unknown]
  - Fatigue [Unknown]
  - Muscle spasms [Unknown]
  - Contusion [Unknown]
  - Eye pain [Unknown]
  - Somnolence [Unknown]
  - Eczema [Unknown]
  - Abdominal distension [Unknown]
  - Cough [Unknown]
  - Dyspnoea [Unknown]
  - Loss of consciousness [Unknown]
  - Rosacea [Unknown]
  - Vitreous floaters [Unknown]
  - Renal pain [Unknown]
  - Cold sweat [Unknown]
  - Constipation [Unknown]
  - Diarrhoea [Unknown]
  - Epistaxis [Unknown]
  - Poor quality sleep [Unknown]
  - Aphasia [Unknown]
  - Vision blurred [Unknown]
  - Mouth ulceration [Unknown]
  - Headache [Unknown]
  - Nausea [Unknown]
  - Drug intolerance [Unknown]
  - Gastrointestinal disorder [Unknown]
  - Disturbance in attention [Unknown]
  - Night sweats [Unknown]
  - Pain [Unknown]
  - Contraindication to medical treatment [Unknown]
  - Diplopia [Unknown]
  - Feeling abnormal [Unknown]
  - Abdominal pain upper [Unknown]
  - Rhinorrhoea [Unknown]
  - Pruritus [Unknown]
  - Treatment failure [Unknown]
  - Sneezing [Unknown]
  - Urticaria [Unknown]
  - Swelling [Unknown]
  - Musculoskeletal stiffness [Unknown]

NARRATIVE: CASE EVENT DATE: 20200417
